FAERS Safety Report 8117837-8 (Version None)
Quarter: 2012Q1

REPORT INFORMATION
  Report Type: 
  Country: None (occurrence: None)
  Receive Date: 20120202
  Receipt Date: 20120123
  Transmission Date: 20120608
  Serious: Yes (Other)
  Sender: FDA-Public Use
  Company Number: 1000027366

PATIENT
  Age: 65 Year
  Sex: Female

DRUGS (3)
  1. CRESTOR [Concomitant]
  2. VITAMIN D (VITAMIN D) (VITAMIN D) [Concomitant]
  3. SAVELLA [Suspect]
     Indication: FIBROMYALGIA
     Dates: start: 20111201, end: 20111201

REACTIONS (2)
  - SUICIDAL IDEATION [None]
  - HOMICIDAL IDEATION [None]
